FAERS Safety Report 6286586-3 (Version None)
Quarter: 2009Q3

REPORT INFORMATION
  Report Type: 
  Country: None (occurrence: None)
  Receive Date: 20090728
  Receipt Date: 20090721
  Transmission Date: 20100115
  Serious: Yes (Hospitalization, Other)
  Sender: FDA-Public Use
  Company Number: JP-ELI_LILLY_AND_COMPANY-JP200907001018

PATIENT
  Age: 45 Year
  Sex: Female
  Weight: 68 kg

DRUGS (2)
  1. GEMZAR [Suspect]
     Indication: NON-SMALL CELL LUNG CANCER
     Dosage: 1000 MG/M2, OTHER
     Route: 042
  2. CISPLATIN [Concomitant]
     Indication: NON-SMALL CELL LUNG CANCER
     Dosage: 80 MG/M2, OTHER
     Route: 042

REACTIONS (2)
  - CHOLECYSTITIS [None]
  - METASTASES TO CENTRAL NERVOUS SYSTEM [None]
